FAERS Safety Report 10657461 (Version 1)
Quarter: 2014Q4

REPORT INFORMATION
  Report Type: Spontaneous
  Country: SE (occurrence: SE)
  Receive Date: 20141217
  Receipt Date: 20141217
  Transmission Date: 20150529
  Serious: Yes (Other)
  Sender: FDA-Public Use
  Company Number: CHPA2014SE016492

PATIENT
  Sex: Female

DRUGS (2)
  1. NICOTINELL [Suspect]
     Active Substance: NICOTINE
     Indication: TOBACCO USER
     Dosage: UNK
     Route: 065
  2. NICOTINELL [Suspect]
     Active Substance: NICOTINE
     Indication: OFF LABEL USE

REACTIONS (3)
  - Therapeutic response unexpected [Unknown]
  - Malaise [Unknown]
  - Drug dependence [Unknown]
